FAERS Safety Report 16430576 (Version 3)
Quarter: 2019Q3

REPORT INFORMATION
  Report Type: Report from Study
  Country: JP (occurrence: JP)
  Receive Date: 20190614
  Receipt Date: 20190718
  Transmission Date: 20191004
  Serious: Yes (Death, Hospitalization, Other)
  Sender: FDA-Public Use
  Company Number: JP-GILEAD-2019-0413288

PATIENT
  Age: 74 Year
  Sex: Female

DRUGS (1)
  1. SOFOSBUVIR W/VELPATASVIR [Suspect]
     Active Substance: SOFOSBUVIR\VELPATASVIR
     Indication: CHRONIC HEPATITIS C
     Dosage: UNK
     Route: 065
     Dates: start: 20160826, end: 20161117

REACTIONS (6)
  - Hepatocellular carcinoma [Recovered/Resolved]
  - Invasive ductal breast carcinoma [Unknown]
  - Depressed level of consciousness [Fatal]
  - Metastases to muscle [Unknown]
  - Hepatocellular carcinoma [Unknown]
  - Metastases to bone [Unknown]
